FAERS Safety Report 6856127-8 (Version None)
Quarter: 2010Q3

REPORT INFORMATION
  Report Type: 
  Country: None (occurrence: None)
  Receive Date: 20100719
  Receipt Date: 20100706
  Transmission Date: 20110219
  Serious: Yes (Other)
  Sender: FDA-Public Use
  Company Number: PHHY2010MX44295

PATIENT
  Age: 50 Year
  Sex: Male
  Weight: 139 kg

DRUGS (1)
  1. EXFORGE HCT [Suspect]
     Indication: HYPERTENSION
     Dosage: 320/10/25 MG (1 TABLET DAILY)
     Route: 048

REACTIONS (1)
  - SWELLING FACE [None]
